FAERS Safety Report 7830843-3 (Version None)
Quarter: 2011Q4

REPORT INFORMATION
  Report Type: 
  Country: None (occurrence: None)
  Receive Date: 20111021
  Receipt Date: 20111020
  Transmission Date: 20120403
  Serious: Yes (Hospitalization)
  Sender: FDA-Public Use
  Company Number: MA-PFIZER INC-2011241357

PATIENT
  Sex: Female

DRUGS (2)
  1. ACCUPRIL [Suspect]
     Dosage: UNK
     Route: 048
  2. ESIDRIX [Concomitant]
     Indication: HYPERTENSION

REACTIONS (2)
  - TOXIC EPIDERMAL NECROLYSIS [None]
  - COMA [None]
